FAERS Safety Report 16252438 (Version 3)
Quarter: 2019Q2

REPORT INFORMATION
  Report Type: Report from Study
  Country: US (occurrence: US)
  Receive Date: 20190429
  Receipt Date: 20190604
  Transmission Date: 20190711
  Serious: Yes (Hospitalization)
  Sender: FDA-Public Use
  Company Number: US-ACTELION-A-US2019-189604

PATIENT
  Sex: Female

DRUGS (2)
  1. OPSUMIT [Suspect]
     Active Substance: MACITENTAN
     Indication: PULMONARY ARTERIAL HYPERTENSION
     Dosage: 10 MG, QD
     Route: 048
     Dates: start: 201903
  2. ADEMPAS [Concomitant]
     Active Substance: RIOCIGUAT

REACTIONS (20)
  - Hypotension [Unknown]
  - Haemolysis [Unknown]
  - Haemolytic anaemia [Unknown]
  - Biopsy bone marrow [Unknown]
  - International normalised ratio increased [Unknown]
  - Packed red blood cell transfusion [Unknown]
  - Hospitalisation [Unknown]
  - Nephropathy [Unknown]
  - Marrow hyperplasia [Unknown]
  - Haemoglobin decreased [Unknown]
  - Thrombocytopenia [Unknown]
  - Dyspnoea [Unknown]
  - Fatigue [Unknown]
  - Renal replacement therapy [Unknown]
  - Biopsy kidney [Unknown]
  - Anuria [Unknown]
  - Haematocrit decreased [Unknown]
  - Platelet count increased [Unknown]
  - Blood urea increased [Unknown]
  - Blood creatinine increased [Unknown]
